FAERS Safety Report 24720469 (Version 2)
Quarter: 2025Q2

REPORT INFORMATION
  Report Type: Report from Study
  Country: DE (occurrence: DE)
  Receive Date: 20241211
  Receipt Date: 20250501
  Transmission Date: 20250716
  Serious: Yes (Other)
  Sender: AUROBINDO
  Company Number: DE-ARISTO PHARMA-LEVOM-LORA202103131

PATIENT
  Age: 33 Year
  Sex: Male

DRUGS (7)
  1. DIAZEPAM [Suspect]
     Active Substance: DIAZEPAM
     Indication: Product used for unknown indication
     Route: 065
  2. TEMAZEPAM [Suspect]
     Active Substance: TEMAZEPAM
     Indication: Product used for unknown indication
     Route: 065
  3. NORDAZEPAM [Suspect]
     Active Substance: NORDAZEPAM
     Indication: Product used for unknown indication
     Route: 065
  4. OXAZEPAM [Suspect]
     Active Substance: OXAZEPAM
     Indication: Product used for unknown indication
     Route: 065
  5. LORAZEPAM [Suspect]
     Active Substance: LORAZEPAM
     Indication: Product used for unknown indication
     Route: 065
  6. LEVOMETHADONE [Suspect]
     Active Substance: LEVOMETHADONE
     Indication: Product used for unknown indication
     Route: 065
  7. DRONABINOL [Suspect]
     Active Substance: DRONABINOL
     Indication: Product used for unknown indication
     Route: 065

REACTIONS (14)
  - Drug abuse [Unknown]
  - Aggression [Unknown]
  - Psychotic behaviour [Unknown]
  - Substance abuse [Unknown]
  - Movement disorder [Unknown]
  - Restlessness [Unknown]
  - Disorientation [Unknown]
  - Dysarthria [Unknown]
  - Confusional state [Unknown]
  - Communication disorder [Unknown]
  - Logorrhoea [Unknown]
  - Personality change [Unknown]
  - Irritability [Unknown]
  - Abnormal behaviour [Unknown]
